FAERS Safety Report 14799777 (Version 1)
Quarter: 2018Q2

REPORT INFORMATION
  Report Type: Spontaneous
  Country: MX (occurrence: MX)
  Receive Date: 20180424
  Receipt Date: 20180424
  Transmission Date: 20180711
  Serious: Yes (Other)
  Sender: FDA-Public Use
  Company Number: MX-BAYER-2018-076970

PATIENT
  Age: 67 Year
  Sex: Female
  Weight: 60 kg

DRUGS (1)
  1. GADOVIST [Suspect]
     Active Substance: GADOBUTROL
     Indication: NUCLEAR MAGNETIC RESONANCE IMAGING BRAIN
     Dosage: 5.5 ML, ONCE

REACTIONS (4)
  - Nausea [Recovered/Resolved]
  - Arrhythmia [Recovered/Resolved]
  - Hypertension [Recovered/Resolved]
  - Respiratory failure [Recovered/Resolved]
